FAERS Safety Report 6055589-6 (Version None)
Quarter: 2009Q1

REPORT INFORMATION
  Report Type: 
  Country: None (occurrence: None)
  Receive Date: 20090128
  Receipt Date: 20090123
  Transmission Date: 20090719
  Serious: Yes (Hospitalization)
  Sender: FDA-Public Use
  Company Number: US-JNJFOC-20090106168

PATIENT
  Sex: Female
  Weight: 73.48 kg

DRUGS (2)
  1. DURAGESIC-100 [Suspect]
     Indication: SYSTEMIC LUPUS ERYTHEMATOSUS
     Route: 062
  2. UNSPECIFIED MEDICATIONS [Concomitant]
     Route: 065

REACTIONS (7)
  - ARTHRALGIA [None]
  - BLADDER DISORDER [None]
  - INCORRECT DRUG ADMINISTRATION DURATION [None]
  - MENTAL IMPAIRMENT [None]
  - MULTIPLE SCLEROSIS [None]
  - OESOPHAGEAL STENOSIS [None]
  - SYSTEMIC LUPUS ERYTHEMATOSUS [None]
